FAERS Safety Report 14964360 (Version 3)
Quarter: 2019Q2

REPORT INFORMATION
  Report Type: Spontaneous
  Country: IT (occurrence: IT)
  Receive Date: 20180601
  Receipt Date: 20190515
  Transmission Date: 20190711
  Serious: Yes (Hospitalization)
  Sender: FDA-Public Use
  Company Number: IT-MYLANLABS-2018M1035400

PATIENT
  Age: 30 Year
  Sex: Female

DRUGS (5)
  1. AMOXICILLIN/CLAVULANIC ACID [Suspect]
     Active Substance: AMOXICILLIN\CLAVULANIC ACID
     Indication: EVIDENCE BASED TREATMENT
     Dosage: UNK
     Route: 065
  2. GENTAMICIN. [Suspect]
     Active Substance: GENTAMICIN
     Indication: EVIDENCE BASED TREATMENT
     Dosage: UNK
     Route: 065
  3. TEICOPLANIN [Suspect]
     Active Substance: TEICOPLANIN
     Indication: EVIDENCE BASED TREATMENT
     Dosage: UNK
     Route: 065
  4. CEFTRIAXONE. [Suspect]
     Active Substance: CEFTRIAXONE
     Indication: EVIDENCE BASED TREATMENT
     Dosage: UNK
     Route: 065
  5. LEVOFLOXACIN. [Suspect]
     Active Substance: LEVOFLOXACIN
     Indication: EVIDENCE BASED TREATMENT
     Route: 065

REACTIONS (2)
  - Drug ineffective [Unknown]
  - Medication error [Unknown]
